FAERS Safety Report 7829382-5 (Version None)
Quarter: 2011Q4

REPORT INFORMATION
  Report Type: 
  Country: None (occurrence: None)
  Receive Date: 20111020
  Receipt Date: 20111004
  Transmission Date: 20120403
  Serious: Yes (Hospitalization)
  Sender: FDA-Public Use
  Company Number: IT-ROCHE-1000584

PATIENT
  Sex: Female

DRUGS (3)
  1. NAPROXEN SODIUM [Suspect]
     Indication: NECK PAIN
     Route: 048
     Dates: start: 20110913, end: 20110914
  2. KETOPROFEN [Suspect]
     Indication: NECK PAIN
     Route: 048
     Dates: start: 20110913, end: 20110914
  3. DELORAZEPAM [Concomitant]

REACTIONS (2)
  - MICROCYTIC ANAEMIA [None]
  - GASTRODUODENITIS [None]
